FAERS Safety Report 14096003 (Version 1)
Quarter: 2017Q4

REPORT INFORMATION
  Report Type: Spontaneous
  Country: FR (occurrence: FR)
  Receive Date: 20171017
  Receipt Date: 20171017
  Transmission Date: 20180321
  Serious: Yes (Hospitalization)
  Sender: FDA-Public Use
  Company Number: FR-ORION CORPORATION ORION PHARMA-ENTC2017-0470

PATIENT
  Age: 73 Year
  Sex: Male

DRUGS (9)
  1. OXAZEPAM. [Concomitant]
     Active Substance: OXAZEPAM
     Route: 065
  2. IRBESARTAN. [Concomitant]
     Active Substance: IRBESARTAN
     Route: 065
  3. MADOPAR [Suspect]
     Active Substance: BENSERAZIDE HYDROCHLORIDE\LEVODOPA
     Route: 048
     Dates: end: 20170807
  4. SINEMET LP [Concomitant]
     Active Substance: CARBIDOPA\LEVODOPA
     Route: 065
  5. LABETALOL [Concomitant]
     Active Substance: LABETALOL\LABETALOL HYDROCHLORIDE
     Dosage: STRENGTH: 100 MG
     Route: 065
  6. MIRTAZAPINE. [Concomitant]
     Active Substance: MIRTAZAPINE
     Route: 065
  7. TRIVASTAL [Suspect]
     Active Substance: PIRIBEDIL
     Indication: PARKINSON^S DISEASE
     Dosage: STRENGTH: 50 MG
     Route: 048
  8. STALEVO [Suspect]
     Active Substance: CARBIDOPA\ENTACAPONE\LEVODOPA
     Indication: PARKINSON^S DISEASE
     Dosage: STRENGTH: 200/50/200 MG
     Route: 048
     Dates: end: 20170807
  9. EXELON [Concomitant]
     Active Substance: RIVASTIGMINE TARTRATE
     Route: 065

REACTIONS (3)
  - Aggression [Recovering/Resolving]
  - Dyskinesia [Unknown]
  - Impulse-control disorder [Recovering/Resolving]

NARRATIVE: CASE EVENT DATE: 201708
